FAERS Safety Report 11708391 (Version 1)
Quarter: 2015Q4

REPORT INFORMATION
  Report Type: Spontaneous
  Country: US (occurrence: US)
  Receive Date: 20151104
  Receipt Date: 20151104
  Transmission Date: 20160304
  Serious: No
  Sender: FDA-Public Use
  Company Number: US-ELI_LILLY_AND_COMPANY-US201108005212

PATIENT
  Age: 63 Year
  Sex: Female

DRUGS (1)
  1. FORTEO [Suspect]
     Active Substance: TERIPARATIDE
     Indication: OSTEOPOROSIS
     Dosage: 20 UG, QD
     Dates: start: 20110725

REACTIONS (12)
  - Bone pain [Recovering/Resolving]
  - Pain in extremity [Recovering/Resolving]
  - Vomiting [Recovering/Resolving]
  - Drug dose omission [Recovering/Resolving]
  - Weight decreased [Recovering/Resolving]
  - Adverse event [Recovering/Resolving]
  - Fibromyalgia [Recovering/Resolving]
  - Musculoskeletal discomfort [Recovering/Resolving]
  - Malaise [Recovering/Resolving]
  - Arthralgia [Recovering/Resolving]
  - Muscular weakness [Recovering/Resolving]
  - Nausea [Recovering/Resolving]

NARRATIVE: CASE EVENT DATE: 20110726
